FAERS Safety Report 6084240-4 (Version None)
Quarter: 2009Q1

REPORT INFORMATION
  Report Type: 
  Country: None (occurrence: None)
  Receive Date: 20090219
  Receipt Date: 20090212
  Transmission Date: 20090719
  Serious: Yes (Other)
  Sender: FDA-Public Use
  Company Number: CA-ELI_LILLY_AND_COMPANY-CA200902003208

PATIENT
  Age: 13 Year
  Sex: Male

DRUGS (5)
  1. STRATTERA [Suspect]
     Dosage: 10 MG, UNKNOWN
     Route: 065
     Dates: start: 20071101
  2. STRATTERA [Suspect]
     Dosage: 25 MG, UNKNOWN
     Route: 065
  3. STRATTERA [Suspect]
     Dosage: 40 MG, UNKNOWN
     Route: 065
  4. STRATTERA [Suspect]
     Dosage: 60 MG, UNKNOWN
     Route: 065
  5. STRATTERA [Suspect]
     Dosage: 25 MG, UNKNOWN
     Route: 065

REACTIONS (1)
  - ELECTROCARDIOGRAM QT PROLONGED [None]
